FAERS Safety Report 9602776 (Version 1)
Quarter: 2013Q4

REPORT INFORMATION
  Report Type: Spontaneous
  Country: US (occurrence: US)
  Receive Date: 20131007
  Receipt Date: 20131007
  Transmission Date: 20140711
  Serious: Yes (Hospitalization)
  Sender: FDA-Public Use
  Company Number: US-BAYER-2013-120652

PATIENT
  Age: 22 Year
  Sex: Female

DRUGS (8)
  1. YAZ [Suspect]
  2. ADVAIR DISKUS [Concomitant]
     Dosage: UNK
     Dates: start: 20080507
  3. PROVENTIL HFA [Concomitant]
  4. AZMACORT [Concomitant]
  5. FLUTICASONE PROPIONATE [Concomitant]
     Dosage: UNK
     Dates: start: 20080603
  6. PERCOCET [Concomitant]
  7. MOTRIN [Concomitant]
  8. ALBUTEROL [Concomitant]

REACTIONS (1)
  - Pulmonary embolism [None]
